FAERS Safety Report 18443770 (Version 2)
Quarter: 2020Q4

REPORT INFORMATION
  Report Type: Report from Study
  Country: None (occurrence: US)
  Receive Date: 20201029
  Receipt Date: 20201030
  Transmission Date: 20210114
  Serious: Yes (Other)
  Sender: FDA-Public Use
  Company Number: US-ABBVIE-20K-163-3593220-00

PATIENT
  Age: 55 Year
  Sex: Female

DRUGS (2)
  1. HUMIRA [Suspect]
     Active Substance: ADALIMUMAB
     Indication: RHEUMATOID ARTHRITIS
  2. HUMIRA [Suspect]
     Active Substance: ADALIMUMAB
     Indication: PSORIASIS
     Dosage: CITRATE FREE
     Route: 058

REACTIONS (12)
  - Wrong technique in product usage process [Unknown]
  - Feeling abnormal [Unknown]
  - Device issue [Unknown]
  - Migraine [Unknown]
  - Visual impairment [Unknown]
  - Vision blurred [Unknown]
  - Feeling hot [Unknown]
  - Disturbance in attention [Unknown]
  - Illness [Unknown]
  - Tooth extraction [Recovering/Resolving]
  - Pyrexia [Not Recovered/Not Resolved]
  - Swelling face [Unknown]

NARRATIVE: CASE EVENT DATE: 2020
